FAERS Safety Report 8954574 (Version 1)
Quarter: 2012Q4

REPORT INFORMATION
  Report Type: Spontaneous
  Country: US (occurrence: None)
  Receive Date: 20121205
  Receipt Date: 20121205
  Transmission Date: 20130627
  Serious: Yes (Other)
  Sender: FDA-Public Use
  Company Number: None

PATIENT
  Age: 55 Year
  Sex: Male
  Weight: 104.33 kg

DRUGS (1)
  1. ATORVASTATIN [Suspect]
     Indication: HYPERLIPIDEMIA
     Route: 048
     Dates: start: 20120512, end: 20120812

REACTIONS (5)
  - Arthralgia [None]
  - Fatigue [None]
  - Blood creatinine increased [None]
  - Aspartate aminotransferase increased [None]
  - Alanine aminotransferase increased [None]
